FAERS Safety Report 16864010 (Version 1)
Quarter: 2019Q3

REPORT INFORMATION
  Report Type: Spontaneous
  Country: US (occurrence: US)
  Receive Date: 20190927
  Receipt Date: 20190927
  Transmission Date: 20191005
  Serious: Yes (Hospitalization, Other)
  Sender: FDA-Public Use
  Company Number: US-TEVA-2019-US-1115051

PATIENT
  Age: 16 Year
  Sex: Female

DRUGS (3)
  1. NEFAZODONE [Suspect]
     Active Substance: NEFAZODONE
     Route: 065
  2. OLANZAPINE. [Suspect]
     Active Substance: OLANZAPINE
     Route: 065
  3. VALPROIC ACID. [Suspect]
     Active Substance: VALPROIC ACID
     Route: 065

REACTIONS (5)
  - Electrocardiogram change [Recovered/Resolved]
  - Intentional overdose [Recovered/Resolved]
  - Blood pressure increased [Recovered/Resolved]
  - Heart rate increased [Recovered/Resolved]
  - Depressed level of consciousness [Recovered/Resolved]
